FAERS Safety Report 8608620-5 (Version None)
Quarter: 2012Q3

REPORT INFORMATION
  Report Type: 
  Country: None (occurrence: None)
  Receive Date: 20120806
  Receipt Date: 20120720
  Transmission Date: 20120928
  Serious: Yes (Other)
  Sender: FDA-Public Use
  Company Number: DSA_58652_2012

PATIENT

DRUGS (6)
  1. FLUDEOXYGLUCOSE (18F) [Concomitant]
  2. THERAPEUTICAL RASIOPHARMACEUTICALS (THERAPEUTICAL RASIOPHARMACEUTICALS [Suspect]
     Indication: OESOPHAGEAL CARCINOMA
     Dosage: 10 MV, 2GY DAILY
  3. FLUOROURACIL [Suspect]
     Indication: OESOPHAGEAL CARCINOMA
     Dosage: DF
  4. CISPLATIN [Suspect]
     Indication: OESOPHAGEAL CARCINOMA
     Dosage: DF
  5. NEDAPLATIN (NEDAPLATIN) [Suspect]
     Indication: OESOPHAGEAL CARCINOMA
     Dosage: DF
  6. I.V. SOLUTIONS [Concomitant]

REACTIONS (1)
  - OESOPHAGITIS [None]
